FAERS Safety Report 15450671 (Version 2)
Quarter: 2018Q4

REPORT INFORMATION
  Report Type: Spontaneous
  Country: US (occurrence: US)
  Receive Date: 20181001
  Receipt Date: 20181207
  Transmission Date: 20190204
  Serious: No
  Sender: FDA-Public Use
  Company Number: US-SA-2018SA270670

PATIENT
  Age: 16 Year
  Sex: Female
  Weight: 63.04 kg

DRUGS (1)
  1. DUPIXENT [Suspect]
     Active Substance: DUPILUMAB
     Indication: NEURODERMATITIS
     Dosage: 600 MG, 1X
     Route: 058
     Dates: start: 20180428

REACTIONS (3)
  - Weight increased [Unknown]
  - Injection site reaction [Unknown]
  - Neurodermatitis [Unknown]
